FAERS Safety Report 9226822 (Version 1)
Quarter: 2013Q2

REPORT INFORMATION
  Report Type: Spontaneous
  Country: US (occurrence: US)
  Receive Date: 20130412
  Receipt Date: 20130412
  Transmission Date: 20140414
  Serious: No
  Sender: FDA-Public Use
  Company Number: US-JNJFOC-20130400217

PATIENT
  Sex: Male
  Weight: 64.41 kg

DRUGS (9)
  1. DURAGESIC [Suspect]
     Indication: PAIN
     Route: 062
     Dates: start: 2006
  2. FENTANYL TRANSDERMAL SYSTEM [Suspect]
     Indication: PAIN
     Route: 062
  3. DURAGESIC [Suspect]
     Indication: PAIN
     Route: 062
     Dates: start: 201302
  4. DURAGESIC [Suspect]
     Indication: PAIN
     Route: 062
     Dates: end: 201209
  5. GABAPENTIN [Concomitant]
     Indication: BIPOLAR DISORDER
     Route: 065
     Dates: start: 2012
  6. ABILIFY [Concomitant]
     Indication: BIPOLAR DISORDER
     Route: 065
     Dates: start: 2012
  7. DIAZEPAM [Concomitant]
     Indication: CONVULSION
     Route: 065
     Dates: start: 1986
  8. VITAMIN D3 [Concomitant]
     Route: 065
     Dates: start: 2012
  9. NEXIUM [Concomitant]
     Indication: GASTRIC DISORDER
     Route: 065
     Dates: start: 2012

REACTIONS (4)
  - Drug dose omission [Recovered/Resolved]
  - Product quality issue [Unknown]
  - Product quality issue [Unknown]
  - Adverse event [Not Recovered/Not Resolved]
